FAERS Safety Report 18557565 (Version 1)
Quarter: 2020Q4

REPORT INFORMATION
  Report Type: Spontaneous
  Country: IN (occurrence: IN)
  Receive Date: 20201130
  Receipt Date: 20201130
  Transmission Date: 20210114
  Serious: Yes (Death, Other)
  Sender: FDA-Public Use
  Company Number: IN-ROCHE-2226758

PATIENT
  Sex: Female

DRUGS (5)
  1. XELODA [Suspect]
     Active Substance: CAPECITABINE
     Indication: TRIPLE NEGATIVE BREAST CANCER
     Dosage: STOPPED AFTER SECOND CYCLE.
     Route: 065
  2. PERINORM [Concomitant]
     Indication: TRIPLE NEGATIVE BREAST CANCER
     Dosage: YES
     Dates: start: 201812
  3. LETROZOLE. [Suspect]
     Active Substance: LETROZOLE
     Indication: TRIPLE NEGATIVE BREAST CANCER
     Dosage: STOPPED AFTER SECOND CYCLE.
     Route: 065
  4. ONDANSETRON [Concomitant]
     Active Substance: ONDANSETRON
     Indication: TRIPLE NEGATIVE BREAST CANCER
     Dosage: YES
     Dates: start: 201812
  5. TRAMADOL HCL [Concomitant]
     Active Substance: TRAMADOL HYDROCHLORIDE
     Indication: TRIPLE NEGATIVE BREAST CANCER
     Dosage: YES
     Dates: start: 201812

REACTIONS (10)
  - Asthenia [Unknown]
  - Tongue discolouration [Unknown]
  - Death [Fatal]
  - Pleural effusion [Unknown]
  - Dyspnoea [Unknown]
  - Dysphagia [Unknown]
  - Somnolence [Unknown]
  - Oral mucosal eruption [Unknown]
  - Phrenic nerve paralysis [Unknown]
  - Skin discolouration [Unknown]

NARRATIVE: CASE EVENT DATE: 2018
